FAERS Safety Report 20511310 (Version 1)
Quarter: 2022Q1

REPORT INFORMATION
  Report Type: Spontaneous
  Country: CN (occurrence: CN)
  Receive Date: 20220224
  Receipt Date: 20220224
  Transmission Date: 20220423
  Serious: Yes (Hospitalization)
  Sender: FDA-Public Use
  Company Number: CN-BAYER-2022A026541

PATIENT
  Age: 48 Year
  Sex: Female

DRUGS (4)
  1. AVELOX [Suspect]
     Active Substance: MOXIFLOXACIN HYDROCHLORIDE
     Indication: Antiinflammatory therapy
     Dosage: 400 MG, QD
     Route: 048
     Dates: start: 20220119, end: 20220119
  2. SODIUM CHLORIDE [Concomitant]
     Active Substance: SODIUM CHLORIDE
     Dosage: 250 ML
     Route: 041
     Dates: start: 20220119
  3. DEXAMETHASONE [Concomitant]
     Active Substance: DEXAMETHASONE
     Dosage: 10 MG,30GTT/MIN
     Route: 041
     Dates: start: 20220119
  4. CHLORPHENIRAMINE MALEATE [Concomitant]
     Active Substance: CHLORPHENIRAMINE MALEATE
     Dosage: 10 MG
     Route: 030
     Dates: start: 20220119

REACTIONS (7)
  - Dizziness [Recovered/Resolved]
  - Vertigo [None]
  - Pallor [Recovered/Resolved]
  - Hyperhidrosis [None]
  - Drug hypersensitivity [Recovering/Resolving]
  - Sinus arrhythmia [None]
  - Off label use [None]

NARRATIVE: CASE EVENT DATE: 20220119
